FAERS Safety Report 4853491-6 (Version None)
Quarter: 2005Q4

REPORT INFORMATION
  Report Type: 
  Country: None (occurrence: None)
  Receive Date: 20051214
  Receipt Date: 20051115
  Transmission Date: 20060501
  Serious: Yes (Other)
  Sender: FDA-Public Use
  Company Number: PHBS2005ES17061

PATIENT
  Age: 57 Year
  Sex: Female

DRUGS (4)
  1. ZOMETA [Suspect]
     Indication: MULTIPLE MYELOMA
     Dosage: 4 MG, UNK
     Route: 042
     Dates: start: 20030318, end: 20051025
  2. DEXAMETHASONE [Concomitant]
  3. INTERFERON [Concomitant]
  4. AREDIA [Suspect]
     Indication: MULTIPLE MYELOMA
     Dates: start: 20001201, end: 20010401

REACTIONS (2)
  - OSTEONECROSIS [None]
  - TOOTH EXTRACTION [None]
